FAERS Safety Report 9985030 (Version 1)
Quarter: 2014Q1

REPORT INFORMATION
  Report Type: Report from Study
  Country: US (occurrence: US)
  Receive Date: 20140307
  Receipt Date: 20140307
  Transmission Date: 20141002
  Serious: No
  Sender: FDA-Public Use
  Company Number: US-ABBVIE-13P-163-1184610-00

PATIENT
  Age: 48 Year
  Sex: Female

DRUGS (7)
  1. HUMIRA [Suspect]
     Indication: CROHN^S DISEASE
     Dates: start: 201210
  2. ASACOL [Concomitant]
     Indication: CROHN^S DISEASE
  3. AZATHIOPRINE [Concomitant]
     Indication: CROHN^S DISEASE
  4. NEXIUM [Concomitant]
     Indication: GASTROOESOPHAGEAL REFLUX DISEASE
  5. YASMIN [Concomitant]
     Indication: CONTRACEPTION
  6. B12 [Concomitant]
     Indication: INTESTINAL RESECTION
  7. B12 [Concomitant]
     Indication: VITAMIN B12 DECREASED

REACTIONS (4)
  - Wrong technique in drug usage process [Unknown]
  - Diarrhoea [Not Recovered/Not Resolved]
  - Injury associated with device [Unknown]
  - Stress [Unknown]
